FAERS Safety Report 21621417 (Version 1)
Quarter: 2022Q4

REPORT INFORMATION
  Report Type: Spontaneous
  Country: US (occurrence: US)
  Receive Date: 20221121
  Receipt Date: 20221121
  Transmission Date: 20230113
  Serious: No
  Sender: FDA-Public Use
  Company Number: US-CSLP-03714952796-V11157130-79

PATIENT
  Age: 26 Year
  Sex: Male

DRUGS (2)
  1. ANTICOAGULANT SODIUM CITRATE [Suspect]
     Active Substance: SODIUM CITRATE
     Indication: Anticoagulant therapy
     Route: 050
     Dates: start: 20221026, end: 20221026
  2. IBUPROFEN [Concomitant]
     Active Substance: IBUPROFEN
     Indication: Pain

REACTIONS (8)
  - Hypoaesthesia [Recovered/Resolved]
  - Chills [Recovered/Resolved]
  - Tetany [Recovered/Resolved]
  - Anxiety [Recovered/Resolved]
  - Tachypnoea [Recovered/Resolved]
  - Paraesthesia [Recovered/Resolved]
  - Hyperventilation [Recovered/Resolved]
  - Muscle spasms [Recovered/Resolved]

NARRATIVE: CASE EVENT DATE: 20221026
